FAERS Safety Report 9630979 (Version 2)
Quarter: 2014Q2

REPORT INFORMATION
  Report Type: Spontaneous
  Country: US (occurrence: US)
  Receive Date: 20131018
  Receipt Date: 20140618
  Transmission Date: 20141212
  Serious: Yes (Other)
  Sender: FDA-Public Use
  Company Number: US-PFIZER INC-2013297558

PATIENT
  Age: 54 Year
  Sex: Female
  Weight: 66 kg

DRUGS (4)
  1. LIPITOR [Suspect]
     Indication: LOW DENSITY LIPOPROTEIN INCREASED
     Dosage: 10 MG, DAILY
     Route: 048
     Dates: start: 2001, end: 2006
  2. LIPITOR [Suspect]
     Indication: CARDIOVASCULAR EVENT PROPHYLAXIS
     Dosage: 20 MG, DAILY
     Route: 048
     Dates: start: 2006, end: 2012
  3. VITAMIN E [Concomitant]
     Indication: VITAMIN SUPPLEMENTATION
     Dosage: UNK, ONCE DAILY
     Dates: start: 1993, end: 2005
  4. CENTRUM [Concomitant]
     Indication: VITAMIN SUPPLEMENTATION
     Dosage: UNK, ONCE DAILY
     Dates: start: 1994, end: 2005

REACTIONS (1)
  - Type 2 diabetes mellitus [Not Recovered/Not Resolved]
